FAERS Safety Report 18456427 (Version 1)
Quarter: 2020Q4

REPORT INFORMATION
  Report Type: Spontaneous
  Country: GB (occurrence: US)
  Receive Date: 20201103
  Receipt Date: 20201103
  Transmission Date: 20210114
  Serious: Yes (Life-Threatening, Hospitalization, Other)
  Sender: FDA-Public Use
  Company Number: US-ELI_LILLY_AND_COMPANY-US202010012108

PATIENT
  Age: 65 Year
  Sex: Male

DRUGS (2)
  1. TESTOSTERONE SOLUTION (LY900011) [Suspect]
     Active Substance: TESTOSTERONE
     Indication: FATIGUE
     Dosage: UNK, WEEKLY (1/W)
     Route: 065
  2. TESTOSTERONE SOLUTION (LY900011) [Suspect]
     Active Substance: TESTOSTERONE
     Indication: HORMONE REPLACEMENT THERAPY

REACTIONS (7)
  - Sinus tachycardia [Unknown]
  - Diastolic dysfunction [Unknown]
  - Ventricular hypokinesia [Unknown]
  - Right ventricular enlargement [Unknown]
  - Pulmonary embolism [Unknown]
  - Deep vein thrombosis [Unknown]
  - Acute myocardial infarction [Unknown]
